FAERS Safety Report 8318811-9 (Version None)
Quarter: 2012Q2

REPORT INFORMATION
  Report Type: 
  Country: None (occurrence: None)
  Receive Date: 20120427
  Receipt Date: 20120424
  Transmission Date: 20120825
  Serious: Yes (Hospitalization, Other)
  Sender: FDA-Public Use
  Company Number: US-BAYER-2012-040940

PATIENT
  Sex: Female
  Weight: 61.678 kg

DRUGS (11)
  1. ROXICET [Concomitant]
     Dosage: 325 MG, Q4HR
     Route: 048
  2. ABILIFY [Concomitant]
     Dosage: 10 MG, UNK
     Dates: start: 20110506
  3. PROTONIX [Concomitant]
     Dosage: 40 MG, QD
  4. PANTOPRAZOLE [Concomitant]
     Dosage: 25 MG, UNK
     Dates: end: 20110626
  5. VICODIN [Concomitant]
     Indication: PAIN
     Dosage: 5 MG, QID
     Route: 048
  6. VICODIN [Concomitant]
     Dosage: 500 MG, QID
     Route: 048
  7. PANTOPRAZOLE [Concomitant]
     Dosage: 25 MG, UNK
     Dates: start: 20110516
  8. ROXICET [Concomitant]
     Indication: PAIN
     Dosage: UNK, UNK
     Route: 048
  9. YASMIN [Suspect]
     Indication: CONTRACEPTION
     Dosage: UNK
     Dates: start: 20080624
  10. DROSPIRENONE AND ETHINYL ESTRADIOL [Suspect]
     Indication: CONTRACEPTION
     Dosage: UNK
     Dates: start: 20080722, end: 20111218
  11. PANTOPRAZOLE [Concomitant]
     Dosage: 40 MG, UNK
     Dates: start: 20110528

REACTIONS (5)
  - ABDOMINAL DISCOMFORT [None]
  - PAIN [None]
  - CHOLECYSTECTOMY [None]
  - ABDOMINAL PAIN UPPER [None]
  - CHOLECYSTITIS ACUTE [None]
